FAERS Safety Report 4752457-4 (Version None)
Quarter: 2005Q3

REPORT INFORMATION
  Report Type: 
  Country: None (occurrence: None)
  Receive Date: 20050825
  Receipt Date: 20050816
  Transmission Date: 20060218
  Serious: Yes (Hospitalization)
  Sender: FDA-Public Use
  Company Number: 2005CG01384

PATIENT
  Age: 80 Year
  Sex: Female

DRUGS (11)
  1. DIPRIVAN [Suspect]
     Indication: GENERAL ANAESTHESIA
     Route: 042
     Dates: start: 20050707, end: 20050707
  2. SUPRANE [Suspect]
     Indication: GENERAL ANAESTHESIA
     Route: 055
     Dates: start: 20050707, end: 20050707
  3. ALFENTANIL [Suspect]
     Indication: GENERAL ANAESTHESIA
     Route: 042
     Dates: start: 20050707, end: 20050707
  4. OPHTIM [Suspect]
     Route: 047
     Dates: start: 20050706, end: 20050707
  5. NEXIUM [Concomitant]
  6. CITALOPRAM HYDROBROMIDE [Concomitant]
  7. OSTRAM [Concomitant]
  8. PERIDYS [Concomitant]
  9. ARICEPT [Concomitant]
  10. XALATAN [Concomitant]
     Route: 047
  11. EXOCINE [Concomitant]
     Route: 047

REACTIONS (6)
  - BLOOD POTASSIUM DECREASED [None]
  - CONVULSION [None]
  - ELECTROCARDIOGRAM QT PROLONGED [None]
  - LOSS OF CONSCIOUSNESS [None]
  - MALAISE [None]
  - TORSADE DE POINTES [None]
